FAERS Safety Report 12678932 (Version 3)
Quarter: 2016Q3

REPORT INFORMATION
  Report Type: Spontaneous
  Country: JP (occurrence: JP)
  Receive Date: 20160824
  Receipt Date: 20160916
  Transmission Date: 20161109
  Serious: Yes (Hospitalization)
  Sender: FDA-Public Use
  Company Number: JP-009507513-1608JPN011037

PATIENT
  Age: 72 Year
  Sex: Male
  Weight: 75 kg

DRUGS (6)
  1. VANCOMYCIN [Concomitant]
     Active Substance: VANCOMYCIN
     Dosage: DAILY DOSAGE UNKNOWN
     Route: 041
     Dates: start: 201602
  2. LOXONIN [Concomitant]
     Active Substance: LOXOPROFEN SODIUM
     Indication: PAIN
     Dosage: 1 DOSAGE FORM, TID
     Route: 048
  3. PICILLIBACTA [Concomitant]
     Active Substance: AMPICILLIN SODIUM\SULBACTAM SODIUM
     Indication: MEDICAL DEVICE SITE JOINT INFECTION
     Dosage: 3 G, QID
     Route: 041
     Dates: start: 20160721
  4. CUBICIN [Suspect]
     Active Substance: DAPTOMYCIN
     Indication: MEDICAL DEVICE SITE JOINT INFECTION
     Dosage: 700 MG, QD
     Route: 041
     Dates: start: 20160725, end: 20160815
  5. CEFAZOLIN SODIUM. [Concomitant]
     Active Substance: CEFAZOLIN SODIUM
     Dosage: DAILY DOSE UNKNOWN
     Route: 051
     Dates: start: 201602
  6. VANCOMYCIN [Concomitant]
     Active Substance: VANCOMYCIN
     Indication: MEDICAL DEVICE SITE JOINT INFECTION
     Dosage: 1.5 G, BID
     Route: 041
     Dates: start: 20160708, end: 20160723

REACTIONS (2)
  - Overdose [Unknown]
  - Eosinophilic pneumonia [Recovered/Resolved]

NARRATIVE: CASE EVENT DATE: 20160814
